FAERS Safety Report 23628100 (Version 1)
Quarter: 2024Q1

REPORT INFORMATION
  Report Type: Spontaneous
  Country: GB (occurrence: GB)
  Receive Date: 20240313
  Receipt Date: 20240313
  Transmission Date: 20240409
  Serious: Yes (Other)
  Sender: FDA-Public Use
  Company Number: None

PATIENT

DRUGS (17)
  1. SEVOFLURANE [Suspect]
     Active Substance: SEVOFLURANE
     Indication: Bronchospasm
     Dosage: DOSAGE TEXT: 2-6ML/HR
     Route: 065
     Dates: start: 20220508, end: 20220510
  2. PROPOFOL [Suspect]
     Active Substance: PROPOFOL
     Indication: Sedation
     Dosage: UNK
     Route: 065
     Dates: start: 20220508, end: 20220518
  3. METRONIDAZOLE [Suspect]
     Active Substance: METRONIDAZOLE
     Indication: Infection
     Dosage: UNK
     Route: 065
     Dates: start: 20220508, end: 20220513
  4. LEVOFLOXACIN [Suspect]
     Active Substance: LEVOFLOXACIN
     Indication: Infection
     Dosage: UNK
     Route: 065
     Dates: start: 20220508, end: 20220517
  5. METOCLOPRAMIDE [Suspect]
     Active Substance: METOCLOPRAMIDE
     Indication: Adverse drug reaction
     Dosage: UNK
     Route: 065
     Dates: start: 20220510, end: 20220513
  6. FENTANYL [Suspect]
     Active Substance: FENTANYL\FENTANYL CITRATE
     Indication: Sedation
     Dosage: UNK
     Route: 065
     Dates: start: 20220508, end: 20220514
  7. HYDROCORTISONE [Suspect]
     Active Substance: HYDROCORTISONE
     Indication: Bronchospasm
     Dosage: UNK
     Route: 065
     Dates: start: 20220509, end: 20220517
  8. IPRATROPIUM [Suspect]
     Active Substance: IPRATROPIUM
     Indication: Bronchospasm
     Dosage: UNK
     Route: 065
     Dates: start: 20220508, end: 20220517
  9. KETAMINE [Suspect]
     Active Substance: KETAMINE
     Indication: Sedation
     Dosage: UNK
     Route: 065
     Dates: start: 20220508, end: 20220510
  10. LACTULOSE [Suspect]
     Active Substance: LACTULOSE
     Indication: Constipation
     Dosage: UNK
     Route: 065
     Dates: start: 20220509, end: 20220617
  11. POLYETHYLENE GLYCOLS [Suspect]
     Active Substance: POLYETHYLENE GLYCOLS
     Indication: Constipation
     Dosage: UNK
     Route: 065
     Dates: start: 20220509, end: 20220515
  12. NOREPINEPHRINE [Suspect]
     Active Substance: NOREPINEPHRINE\NOREPINEPHRINE BITARTRATE
     Indication: Hypotension
     Dosage: UNK
     Route: 065
     Dates: start: 20220508, end: 20220510
  13. ASCORBIC ACID\VITAMIN B COMPLEX [Suspect]
     Active Substance: ASCORBIC ACID\VITAMIN B COMPLEX
     Indication: Adverse drug reaction
     Dosage: UNK
     Route: 065
     Dates: start: 20220509, end: 20220513
  14. PANTOPRAZOLE [Suspect]
     Active Substance: PANTOPRAZOLE
     Indication: Antacid therapy
     Dosage: UNK
     Route: 065
     Dates: start: 20220509, end: 20220515
  15. ROCURONIUM [Suspect]
     Active Substance: ROCURONIUM BROMIDE
     Indication: Paralysis
     Dosage: UNK
     Route: 065
     Dates: start: 20220508, end: 20220510
  16. ALBUTEROL [Suspect]
     Active Substance: ALBUTEROL
     Indication: Bronchospasm
     Dosage: UNK
     Route: 065
     Dates: start: 20220509, end: 20220517
  17. SENNA [Suspect]
     Active Substance: SENNA LEAF\SENNOSIDES\SENNOSIDES A AND B
     Indication: Constipation
     Dosage: UNK
     Route: 065
     Dates: start: 20220509, end: 20220517

REACTIONS (1)
  - Nephropathy toxic [Unknown]

NARRATIVE: CASE EVENT DATE: 20220510
